FAERS Safety Report 5461107-3 (Version None)
Quarter: 2007Q3

REPORT INFORMATION
  Report Type: 
  Country: None (occurrence: None)
  Receive Date: 20070920
  Receipt Date: 20070913
  Transmission Date: 20080115
  Serious: Yes (Hospitalization, Other)
  Sender: FDA-Public Use
  Company Number: PHHO2007CA15026

PATIENT
  Age: 59 Year
  Sex: Male
  Weight: 85.6 kg

DRUGS (4)
  1. SIMULECT [Suspect]
     Indication: RENAL TRANSPLANT
     Dosage: 40MG PER MONTH
     Route: 042
     Dates: start: 20060926
  2. MYFORTIC [Suspect]
     Indication: RENAL TRANSPLANT
     Dosage: 720 MG, BID
     Route: 048
     Dates: start: 20060808, end: 20070822
  3. IMURAN [Concomitant]
     Indication: RENAL TRANSPLANT
     Dosage: 100MG DAILY
     Route: 048
     Dates: start: 20070822, end: 20070906
  4. PREDNISONE [Concomitant]
     Indication: RENAL TRANSPLANT
     Dosage: 10 MG, QD
     Route: 048
     Dates: start: 20070117

REACTIONS (8)
  - ANAEMIA [None]
  - ASTHMA [None]
  - BLOOD CREATININE INCREASED [None]
  - BRONCHITIS [None]
  - DRUG INEFFECTIVE [None]
  - GRAFT DYSFUNCTION [None]
  - RENAL FAILURE ACUTE [None]
  - WEIGHT DECREASED [None]
